FAERS Safety Report 11325114 (Version 1)
Quarter: 2015Q3

REPORT INFORMATION
  Report Type: Spontaneous
  Country: US (occurrence: US)
  Receive Date: 20150730
  Receipt Date: 20150730
  Transmission Date: 20151125
  Serious: No
  Sender: FDA-Public Use
  Company Number: US-ELI_LILLY_AND_COMPANY-US201507010334

PATIENT
  Sex: Female

DRUGS (3)
  1. LANTUS [Concomitant]
     Active Substance: INSULIN GLARGINE
     Dosage: 75 U, EACH EVENING
     Route: 065
  2. HUMALOG [Suspect]
     Active Substance: INSULIN LISPRO
     Dosage: 10 U, OTHER
     Route: 065
     Dates: start: 201505
  3. HUMALOG [Suspect]
     Active Substance: INSULIN LISPRO
     Indication: TYPE 2 DIABETES MELLITUS
     Dosage: 10 U, OTHER
     Route: 065
     Dates: start: 201505

REACTIONS (2)
  - Blood glucose increased [Unknown]
  - Drug dose omission [Unknown]

NARRATIVE: CASE EVENT DATE: 201507
